FAERS Safety Report 10243754 (Version 1)
Quarter: 2014Q1

REPORT INFORMATION
  Report Type: Spontaneous
  Country: US (occurrence: None)
  Receive Date: 20140306
  Receipt Date: 20140306
  Transmission Date: 20141002
  Serious: Yes (Other)
  Sender: FDA-Public Use
  Company Number: 163-21880-13114615

PATIENT
  Age: 60 Year
  Sex: Male

DRUGS (26)
  1. MURO 128 (SODIUM CHLORIDE) [Concomitant]
  2. FRESHKOTE (TEARS PLUS) [Concomitant]
  3. ALPHAGAN P (BRIMONIDINE TARTRATE) [Concomitant]
  4. IMODIUM A-D (LOPERAMIDE HYDROCHLORIDE) [Concomitant]
  5. LORAZEPAM [Concomitant]
  6. PHENERGRAN (PROMETHAZINE HYDROCHLORIDE) [Concomitant]
  7. ZOFRAN (ONDANSETRON HYDROCHLORIDE) [Concomitant]
  8. COMPAZINE (PROCHLORPERAZINE EDISYLATE) [Concomitant]
  9. FENTANYL (FENTANYL) [Concomitant]
  10. MORPHINE SULFATE ER (MORPHINE SULFATE) [Concomitant]
  11. ZANAFLEX (TIZANIDINE HYDROCHLORIDE) [Concomitant]
  12. PRAVASTATIN SODIUM [Concomitant]
  13. ZALEPLON [Concomitant]
  14. AMLODIPINE BESYLATE (AMLODIPINE BESILATE) [Concomitant]
  15. NEXIUM (ESOMEPRAZOLE) [Concomitant]
  16. FISH OIL [Concomitant]
  17. LISINOPRIL [Concomitant]
  18. NEURONTIN (GABAPENTIN) [Concomitant]
  19. EFFEXOR (VENLAFAXINE HYDROCHLORIDE) [Concomitant]
  20. WARFARIN [Concomitant]
  21. REVLIMID (LENALIDOMIDE) (10 MILLIGRAM, CAPSULES) [Suspect]
     Indication: PLASMA CELL MYELOMA
     Dosage: 10 MG, 28 IN 28 D, PO
     Route: 048
     Dates: start: 20130916
  22. TORADOL (KETOROLAC TROMETHAMINE) [Concomitant]
  23. ALAVERT (LORATADINE) [Concomitant]
  24. REFRESH (TEARS PLUS) [Concomitant]
  25. GENTEAL MILD (HYPROMELOSE) [Concomitant]
  26. LATANOPROST [Concomitant]

REACTIONS (2)
  - Thrombosis [None]
  - Muscle spasms [None]
